FAERS Safety Report 4791693-8 (Version None)
Quarter: 2005Q4

REPORT INFORMATION
  Report Type: 
  Country: None (occurrence: None)
  Receive Date: 20051007
  Receipt Date: 20050523
  Transmission Date: 20060501
  Serious: Yes (Hospitalization)
  Sender: FDA-Public Use
  Company Number: FR-GLAXOSMITHKLINE-B0383075A

PATIENT
  Age: 41 Year
  Sex: Male
  Weight: 60 kg

DRUGS (4)
  1. ZIAGEN [Suspect]
     Indication: HIV INFECTION
     Dosage: 300MG TWICE PER DAY
     Route: 048
     Dates: start: 20050418, end: 20050426
  2. TELZIR [Suspect]
     Indication: HIV INFECTION
     Dosage: 700MG TWICE PER DAY
     Route: 048
     Dates: start: 20050418, end: 20050427
  3. LAMIVUDINE [Concomitant]
     Indication: HIV INFECTION
     Dosage: 300MG PER DAY
     Route: 048
     Dates: start: 20050418, end: 20050427
  4. NORVIR [Concomitant]
     Indication: HIV INFECTION
     Dosage: 100MG TWICE PER DAY
     Route: 048
     Dates: start: 20050418, end: 20050426

REACTIONS (8)
  - BLISTER [None]
  - DERMATITIS EXFOLIATIVE [None]
  - HYPERSENSITIVITY [None]
  - INFLUENZA LIKE ILLNESS [None]
  - PRURITUS [None]
  - PYREXIA [None]
  - RASH [None]
  - TOXIC SKIN ERUPTION [None]
